FAERS Safety Report 23733562 (Version 1)
Quarter: 2024Q2

REPORT INFORMATION
  Report Type: Spontaneous
  Country: RO (occurrence: RO)
  Receive Date: 20240411
  Receipt Date: 20240411
  Transmission Date: 20240716
  Serious: Yes (Hospitalization)
  Sender: FDA-Public Use
  Company Number: RO-BoehringerIngelheim-2024-BI-021314

PATIENT
  Age: 72 Year
  Sex: Female

DRUGS (1)
  1. OFEV [Suspect]
     Active Substance: NINTEDANIB
     Indication: Idiopathic pulmonary fibrosis
     Dates: start: 20220926

REACTIONS (2)
  - Rectal haemorrhage [Recovered/Resolved]
  - Gastric haemorrhage [Recovered/Resolved]
